FAERS Safety Report 11619025 (Version 1)
Quarter: 2015Q4

REPORT INFORMATION
  Report Type: Spontaneous
  Country: PL (occurrence: PL)
  Receive Date: 20151012
  Receipt Date: 20151012
  Transmission Date: 20160304
  Serious: Yes (Death)
  Sender: FDA-Public Use
  Company Number: PHHY2015PL122811

PATIENT

DRUGS (1)
  1. CERTICAN [Suspect]
     Active Substance: EVEROLIMUS
     Indication: PRODUCT USED FOR UNKNOWN INDICATION
     Dosage: 0.75 MG
     Route: 065

REACTIONS (1)
  - Death [Fatal]
